FAERS Safety Report 5743409-6 (Version None)
Quarter: 2008Q2

REPORT INFORMATION
  Report Type: 
  Country: None (occurrence: None)
  Receive Date: 20080515
  Receipt Date: 20080515
  Transmission Date: 20081010
  Serious: Yes (Other)
  Sender: FDA-Public Use
  Company Number: None

PATIENT
  Sex: Female
  Weight: 84.369 kg

DRUGS (2)
  1. ZOLOFT [Suspect]
     Indication: ANXIETY
     Dosage: USUAL STARTING DOSE
  2. ZOLOFT [Suspect]
     Indication: DEPRESSION
     Dosage: USUAL STARTING DOSE

REACTIONS (5)
  - CONVULSION [None]
  - HEADACHE [None]
  - PRURITUS [None]
  - SLUGGISHNESS [None]
  - SUICIDAL IDEATION [None]
